FAERS Safety Report 19420044 (Version 1)
Quarter: 2021Q2

REPORT INFORMATION
  Report Type: Spontaneous
  Country: US (occurrence: US)
  Receive Date: 20210615
  Receipt Date: 20210615
  Transmission Date: 20210717
  Serious: No
  Sender: FDA-Public Use
  Company Number: US-PFIZER INC-2021650461

PATIENT
  Age: 64 Year
  Sex: Female
  Weight: 106.57 kg

DRUGS (1)
  1. IBRANCE [Suspect]
     Active Substance: PALBOCICLIB
     Indication: BREAST CANCER METASTATIC
     Dosage: 125 MG, 1X/DAY FOR 21 DAYS
     Route: 048
     Dates: start: 20210325

REACTIONS (4)
  - Decreased appetite [Unknown]
  - Somnolence [Unknown]
  - Nausea [Unknown]
  - Weight decreased [Unknown]
